FAERS Safety Report 5783266-5 (Version None)
Quarter: 2008Q2

REPORT INFORMATION
  Report Type: 
  Country: None (occurrence: None)
  Receive Date: 20080605
  Receipt Date: 20080417
  Transmission Date: 20081010
  Serious: No
  Sender: FDA-Public Use
  Company Number: A0715233A

PATIENT

DRUGS (1)
  1. ALLI [Suspect]
     Indication: DRUG USE FOR UNKNOWN INDICATION

REACTIONS (8)
  - DIPLOPIA [None]
  - DIZZINESS [None]
  - FATIGUE [None]
  - FOOD CRAVING [None]
  - INSOMNIA [None]
  - MALAISE [None]
  - VERTIGO [None]
  - WEIGHT FLUCTUATION [None]
